FAERS Safety Report 9793130 (Version 4)
Quarter: 2014Q3

REPORT INFORMATION
  Report Type: Spontaneous
  Country: US (occurrence: US)
  Receive Date: 20140102
  Receipt Date: 20140905
  Transmission Date: 20150326
  Serious: Yes (Hospitalization, Other)
  Sender: FDA-Public Use
  Company Number: US-009507513-1312USA011700

PATIENT
  Sex: Female
  Weight: 78.5 kg

DRUGS (5)
  1. FOSAMAX [Suspect]
     Active Substance: ALENDRONATE SODIUM
     Indication: OSTEOPENIA
     Dosage: 70 MG, UNK
     Route: 048
     Dates: start: 200508, end: 20121004
  2. FOSAMAX [Suspect]
     Active Substance: ALENDRONATE SODIUM
     Indication: OSTEOPOROSIS
     Dosage: 35 MG, QW
     Route: 048
     Dates: end: 20090216
  3. ALENDRONATE SODIUM. [Suspect]
     Active Substance: ALENDRONATE SODIUM
     Indication: OSTEOPENIA
     Dosage: 70 MG, QW
     Dates: start: 20080917, end: 20120927
  4. FOSAMAX [Suspect]
     Active Substance: ALENDRONATE SODIUM
     Dosage: 10 MG, QD
     Route: 048
     Dates: start: 19960111
  5. ALENDRONATE SODIUM. [Suspect]
     Active Substance: ALENDRONATE SODIUM
     Indication: OSTEOPOROSIS
     Dosage: 35 MG, QW
     Dates: start: 20090216, end: 20120927

REACTIONS (18)
  - Major depression [Unknown]
  - Nerve root compression [Unknown]
  - Low turnover osteopathy [Unknown]
  - Periodontal operation [Unknown]
  - Femur fracture [Unknown]
  - Vitamin D deficiency [Unknown]
  - Nasal congestion [Unknown]
  - Skin cancer [Unknown]
  - Bacterial infection [Unknown]
  - Herpes zoster [Unknown]
  - Hot flush [Unknown]
  - Intramedullary rod insertion [Unknown]
  - Electrocardiogram abnormal [Unknown]
  - Osteoarthritis [Unknown]
  - Blood alkaline phosphatase increased [Unknown]
  - Hip fracture [Recovering/Resolving]
  - Stress fracture [Unknown]
  - Chest pain [Unknown]

NARRATIVE: CASE EVENT DATE: 19960729
